FAERS Safety Report 14568149 (Version 2)
Quarter: 2018Q1

REPORT INFORMATION
  Report Type: Spontaneous
  Country: DE (occurrence: DE)
  Receive Date: 20180223
  Receipt Date: 20180223
  Transmission Date: 20180509
  Serious: Yes (Hospitalization, Other)
  Sender: FDA-Public Use
  Company Number: PHHY2015DE177429

PATIENT
  Age: 59 Year
  Sex: Female
  Weight: 83.9 kg

DRUGS (16)
  1. FOLINIC ACID [Suspect]
     Active Substance: LEUCOVORIN
     Dosage: 740 MG, QW2
     Route: 042
     Dates: start: 20150831
  2. AVASTIN [Suspect]
     Active Substance: BEVACIZUMAB
     Dosage: 375 MG, QW2
     Route: 042
     Dates: start: 20151005, end: 20151019
  3. 5-FLUOROURACIL [Suspect]
     Active Substance: FLUOROURACIL
     Dosage: 2250 MG, QW2
     Route: 041
     Dates: start: 20150706, end: 20150708
  4. 5-FLUOROURACIL [Suspect]
     Active Substance: FLUOROURACIL
     Dosage: 2225 MG, QW2
     Route: 041
     Dates: start: 20150831
  5. AVASTIN [Suspect]
     Active Substance: BEVACIZUMAB
     Dosage: 400 MG, QW2
     Route: 042
     Dates: start: 20150831
  6. IRINOTECAN [Suspect]
     Active Substance: IRINOTECAN
     Dosage: 340 MG, QW2
     Route: 042
     Dates: start: 20150831
  7. PREDNISOLON [Suspect]
     Active Substance: PREDNISOLONE
     Indication: ARTHRITIS
     Dosage: 5 MG, QD
     Route: 048
  8. 5-FLUOROURACIL [Suspect]
     Active Substance: FLUOROURACIL
     Dosage: 2225 MG, QW2
     Route: 041
     Dates: start: 20150902
  9. COLECALCIFEROL [Concomitant]
     Active Substance: CHOLECALCIFEROL
     Indication: ARTHRITIS
     Dosage: 20000 IU, QW
     Route: 048
  10. PANTOPRAZOL [Concomitant]
     Active Substance: PANTOPRAZOLE SODIUM
     Indication: ARTHRITIS
     Dosage: 40 MG, QD
     Route: 048
  11. SULFASALAZINE DELAYED-RELEASE [Concomitant]
     Active Substance: SULFASALAZINE
     Indication: ARTHRITIS
     Dosage: 1000 MG, QD
     Route: 048
  12. 5-FLUOROURACIL [Suspect]
     Active Substance: FLUOROURACIL
     Dosage: 750 MG, QW2
     Route: 040
     Dates: start: 20150831
  13. AVASTIN [Suspect]
     Active Substance: BEVACIZUMAB
     Indication: COLORECTAL CANCER
     Dosage: 400 MG, QW2
     Route: 042
     Dates: start: 20150706
  14. IRINOTECAN [Suspect]
     Active Substance: IRINOTECAN
     Indication: COLORECTAL CANCER
     Dosage: 340 MG, QW2
     Route: 042
     Dates: start: 20150706
  15. FOLINIC ACID [Suspect]
     Active Substance: LEUCOVORIN
     Indication: COLORECTAL CANCER
     Dosage: 750 MG, QW2
     Route: 042
     Dates: start: 20150706
  16. 5-FLUOROURACIL [Suspect]
     Active Substance: FLUOROURACIL
     Indication: COLORECTAL CANCER
     Dosage: 750 MG, QW2
     Route: 040
     Dates: start: 20150706

REACTIONS (6)
  - Hypertension [Recovering/Resolving]
  - Urinary tract infection [Recovered/Resolved]
  - Neutropenia [Recovered/Resolved]
  - Off label use [Unknown]
  - Pulmonary embolism [Recovered/Resolved]
  - Leukopenia [Recovering/Resolving]

NARRATIVE: CASE EVENT DATE: 20150706
